FAERS Safety Report 16668667 (Version 8)
Quarter: 2019Q4

REPORT INFORMATION
  Report Type: Spontaneous
  Country: US (occurrence: US)
  Receive Date: 20190805
  Receipt Date: 20191230
  Transmission Date: 20200122
  Serious: Yes (Life-Threatening, Other)
  Sender: FDA-Public Use
  Company Number: US-PFIZER INC-2019335659

PATIENT
  Age: 55 Year
  Sex: Male

DRUGS (1)
  1. VIAGRA [Suspect]
     Active Substance: SILDENAFIL CITRATE
     Indication: SEXUAL DYSFUNCTION
     Dosage: 1/2 TABLET OR 1 FULL TABLET
     Route: 048

REACTIONS (5)
  - Cardiac failure congestive [Unknown]
  - Malaise [Unknown]
  - Attention deficit/hyperactivity disorder [Unknown]
  - Obsessive-compulsive disorder [Unknown]
  - Agitation [Unknown]

NARRATIVE: CASE EVENT DATE: 201711
